FAERS Safety Report 24282614 (Version 1)
Quarter: 2024Q3

REPORT INFORMATION
  Report Type: Spontaneous
  Country: CN (occurrence: CN)
  Receive Date: 20240904
  Receipt Date: 20240904
  Transmission Date: 20241017
  Serious: Yes (Hospitalization, Other)
  Sender: ANI
  Company Number: CN-ANIPHARMA-2024-CN-000355

PATIENT
  Age: 53 Year
  Sex: Female
  Weight: 48 kg

DRUGS (1)
  1. ANASTROZOLE [Suspect]
     Active Substance: ANASTROZOLE
     Indication: Breast cancer
     Dosage: 1 MG DAILY
     Route: 048
     Dates: start: 20230601, end: 20240828

REACTIONS (3)
  - Endometrial hyperplasia [Recovered/Resolved]
  - Endometrial hypertrophy [Recovered/Resolved]
  - Uterine polyp [Unknown]

NARRATIVE: CASE EVENT DATE: 20240813
